FAERS Safety Report 19652074 (Version 6)
Quarter: 2022Q1

REPORT INFORMATION
  Report Type: Spontaneous
  Country: US (occurrence: US)
  Receive Date: 20210803
  Receipt Date: 20220107
  Transmission Date: 20220424
  Serious: Yes (Death, Hospitalization, Other)
  Sender: FDA-Public Use
  Company Number: US-OTSUKA-2021_026299

PATIENT
  Age: 31 Year
  Sex: Male

DRUGS (3)
  1. ABILIFY [Suspect]
     Active Substance: ARIPIPRAZOLE
     Indication: Depression
     Dosage: 30 MG
     Route: 065
     Dates: start: 202106, end: 202106
  2. ABILIFY [Suspect]
     Active Substance: ARIPIPRAZOLE
     Indication: Anxiety
  3. ABILIFY [Suspect]
     Active Substance: ARIPIPRAZOLE
     Indication: Generalised anxiety disorder

REACTIONS (13)
  - Road traffic accident [Fatal]
  - Loss of consciousness [Recovered/Resolved]
  - Tardive dyskinesia [Recovered/Resolved]
  - General physical condition abnormal [Unknown]
  - Illness [Unknown]
  - Eye movement disorder [Unknown]
  - Behaviour disorder [Unknown]
  - Confusional state [Recovered/Resolved]
  - Gambling [Recovered/Resolved]
  - Dyskinesia [Unknown]
  - Fatigue [Unknown]
  - Anxiety [Unknown]
  - Product use in unapproved indication [Unknown]

NARRATIVE: CASE EVENT DATE: 20210601
